FAERS Safety Report 13652224 (Version 6)
Quarter: 2017Q3

REPORT INFORMATION
  Report Type: Report from Study
  Country: BE (occurrence: BE)
  Receive Date: 20170614
  Receipt Date: 20170915
  Transmission Date: 20171127
  Serious: Yes (Hospitalization, Other)
  Sender: FDA-Public Use
  Company Number: BE-BAYER-2017-095640

PATIENT
  Sex: Female

DRUGS (6)
  1. STIVARGA [Suspect]
     Active Substance: REGORAFENIB
     Indication: COLORECTAL CANCER METASTATIC
     Dosage: DAILY DOSE 80 MG
     Dates: start: 20170530, end: 20170531
  2. STIVARGA [Suspect]
     Active Substance: REGORAFENIB
     Indication: COLORECTAL CANCER METASTATIC
     Dosage: UNK
     Dates: start: 201705, end: 201705
  3. STIVARGA [Suspect]
     Active Substance: REGORAFENIB
     Indication: COLORECTAL CANCER METASTATIC
     Dosage: 40MG DAILY IN THE MORNING
     Route: 048
     Dates: start: 20170706
  4. STIVARGA [Suspect]
     Active Substance: REGORAFENIB
     Indication: COLORECTAL CANCER METASTATIC
     Dosage: DAILY DOSE 120 MG
     Dates: start: 20170524, end: 20170529
  5. STIVARGA [Suspect]
     Active Substance: REGORAFENIB
     Indication: COLORECTAL CANCER METASTATIC
     Dosage: 120 MG, DAILY DOSE
     Dates: start: 20170517, end: 201705
  6. STIVARGA [Suspect]
     Active Substance: REGORAFENIB
     Indication: COLORECTAL CANCER METASTATIC
     Dosage: DAILY DOSE 80 MG
     Dates: end: 20170831

REACTIONS (25)
  - Unevaluable event [None]
  - Erythema [Not Recovered/Not Resolved]
  - Fatigue [Not Recovered/Not Resolved]
  - Lung disorder [Not Recovered/Not Resolved]
  - Gait disturbance [Not Recovered/Not Resolved]
  - Pain in extremity [Not Recovered/Not Resolved]
  - Rash [None]
  - Dysphonia [None]
  - Muscle spasms [Unknown]
  - Dysphonia [None]
  - Palmar-plantar erythrodysaesthesia syndrome [Not Recovered/Not Resolved]
  - Dysphonia [Unknown]
  - Palmar-plantar erythrodysaesthesia syndrome [Not Recovered/Not Resolved]
  - Vomiting [None]
  - Fatigue [Not Recovered/Not Resolved]
  - Palmar-plantar erythrodysaesthesia syndrome [None]
  - Dyspnoea [Not Recovered/Not Resolved]
  - Hospitalisation [None]
  - Dysphonia [Not Recovered/Not Resolved]
  - Off label use [None]
  - Palmar-plantar erythrodysaesthesia syndrome [None]
  - Headache [None]
  - Weight decreased [None]
  - Tumour marker abnormal [None]
  - Oral pain [None]

NARRATIVE: CASE EVENT DATE: 201705
